FAERS Safety Report 16745308 (Version 3)
Quarter: 2019Q4

REPORT INFORMATION
  Report Type: Spontaneous
  Country: US (occurrence: US)
  Receive Date: 20190827
  Receipt Date: 20191220
  Transmission Date: 20200122
  Serious: Yes (Hospitalization)
  Sender: FDA-Public Use
  Company Number: US-LEXICON PHARMACEUTICALS, INC-19-1606-00809

PATIENT
  Sex: Male

DRUGS (1)
  1. XERMELO [Suspect]
     Active Substance: TELOTRISTAT ETHYL
     Indication: NEUROENDOCRINE TUMOUR
     Route: 048
     Dates: start: 20190523

REACTIONS (7)
  - Constipation [Not Recovered/Not Resolved]
  - Abdominal pain upper [Unknown]
  - 5-hydroxyindolacetic acid in urine [Not Recovered/Not Resolved]
  - Liver disorder [Unknown]
  - Neurone-specific enolase increased [Not Recovered/Not Resolved]
  - Musculoskeletal chest pain [Unknown]
  - Blood gastrin increased [Not Recovered/Not Resolved]
